FAERS Safety Report 4968463-0 (Version None)
Quarter: 2006Q2

REPORT INFORMATION
  Report Type: 
  Country: None (occurrence: None)
  Receive Date: 20060410
  Receipt Date: 20051123
  Transmission Date: 20061013
  Serious: Yes (Hospitalization)
  Sender: FDA-Public Use
  Company Number: US-MERCK-0511USA03986

PATIENT
  Age: 41 Year
  Sex: Male
  Weight: 75 kg

DRUGS (10)
  1. VIOXX [Suspect]
     Indication: BACK PAIN
     Route: 048
     Dates: start: 19990622, end: 20030630
  2. ACETAMINOPHEN AND CODEINE [Concomitant]
     Indication: PAIN
     Route: 065
     Dates: start: 20010407, end: 20030201
  3. CYCLOBENZAPRINE HYDROCHLORIDE [Concomitant]
     Indication: MUSCLE RELAXANT THERAPY
     Route: 065
     Dates: start: 20020501
  4. DURAGESIC-100 [Concomitant]
     Indication: PAIN
     Route: 065
     Dates: start: 20030317, end: 20030501
  5. K-DUR 10 [Concomitant]
     Indication: MINERAL SUPPLEMENTATION
     Route: 065
     Dates: start: 20010501
  6. METHYLPREDNISOLONE [Concomitant]
     Route: 065
     Dates: start: 20020601
  7. NEURONTIN [Concomitant]
     Route: 065
     Dates: start: 20010101
  8. ACETAMINOPHEN AND OXYCODONE HYDROCHLORIDE [Concomitant]
     Indication: PAIN
     Route: 065
     Dates: start: 20010608, end: 20010701
  9. SKELAXIN [Concomitant]
     Indication: MUSCLE RELAXANT THERAPY
     Route: 065
     Dates: start: 20020901
  10. BEXTRA [Concomitant]
     Route: 065
     Dates: start: 20021101

REACTIONS (18)
  - ANXIETY [None]
  - ARTHRITIS [None]
  - BACTERIAL INFECTION [None]
  - CELLULITIS [None]
  - CONSTIPATION [None]
  - DEEP VEIN THROMBOSIS [None]
  - DEPRESSION [None]
  - FALL [None]
  - GASTROOESOPHAGEAL REFLUX DISEASE [None]
  - HEAD INJURY [None]
  - HYPERTENSION [None]
  - INFECTION [None]
  - IRRITABLE BOWEL SYNDROME [None]
  - NEPHROLITHIASIS [None]
  - OEDEMA PERIPHERAL [None]
  - PULMONARY EMBOLISM [None]
  - SLEEP APNOEA SYNDROME [None]
  - URINARY TRACT INFECTION [None]
